FAERS Safety Report 23812029 (Version 1)
Quarter: 2024Q2

REPORT INFORMATION
  Report Type: Spontaneous
  Country: ZA (occurrence: None)
  Receive Date: 20240503
  Receipt Date: 20240503
  Transmission Date: 20240716
  Serious: Yes (Hospitalization)
  Sender: FDA-Public Use
  Company Number: 2024A098532

PATIENT
  Age: 85 Year
  Sex: Female

DRUGS (10)
  1. BUDESONIDE\FORMOTEROL [Suspect]
     Active Substance: BUDESONIDE\FORMOTEROL
     Dosage: 60 DOSE 160/4.5 MCG; UNKNOWN UNKNOWN
     Route: 055
  2. ELTROXIN NEW [Concomitant]
  3. ECOTRIN [Concomitant]
     Active Substance: ASPIRIN
  4. ALZIDO [Concomitant]
  5. PERDOTOR PLUS [Concomitant]
     Dosage: 4/1.25 MG
  6. AMLODIPINE BESYLATE [Concomitant]
     Active Substance: AMLODIPINE BESYLATE
  7. QUETIAPINE [Concomitant]
     Active Substance: QUETIAPINE
  8. EASYBLIST [Concomitant]
     Dosage: QID COLD SEAL PACK 335028
  9. ADCO-DOL [Concomitant]
  10. BUTYLSCOPOLAMINE BROMIDE [Concomitant]
     Active Substance: BUTYLSCOPOLAMINE BROMIDE

REACTIONS (1)
  - Pneumothorax [Unknown]
